FAERS Safety Report 5787745-6 (Version None)
Quarter: 2008Q2

REPORT INFORMATION
  Report Type: 
  Country: None (occurrence: None)
  Receive Date: 20080624
  Receipt Date: 20080624
  Transmission Date: 20081010
  Serious: Yes (Other)
  Sender: FDA-Public Use
  Company Number: None

PATIENT
  Sex: Female
  Weight: 56.6996 kg

DRUGS (1)
  1. CHANTIX [Suspect]
     Indication: SMOKING CESSATION THERAPY
     Dosage: CHANTIX BID
     Dates: start: 20071015, end: 20071101

REACTIONS (6)
  - AMNESIA [None]
  - CONFUSIONAL STATE [None]
  - FACIAL PARESIS [None]
  - MOOD SWINGS [None]
  - PERSONALITY CHANGE [None]
  - VISUAL DISTURBANCE [None]
